FAERS Safety Report 13347266 (Version 1)
Quarter: 2017Q1

REPORT INFORMATION
  Report Type: Report from Study
  Country: CA (occurrence: CA)
  Receive Date: 20170317
  Receipt Date: 20170317
  Transmission Date: 20170428
  Serious: Yes (Other)
  Sender: FDA-Public Use
  Company Number: CA-BRISTOL-MYERS SQUIBB COMPANY-BMS-2016-070559

PATIENT
  Age: 64 Year
  Sex: Female

DRUGS (4)
  1. VITAMIN D                          /00107901/ [Concomitant]
     Active Substance: ERGOCALCIFEROL
     Indication: HEPATIC ENZYME
     Route: 065
  2. PREDNISONE. [Concomitant]
     Active Substance: PREDNISONE
     Indication: HEPATIC ENZYME
     Route: 065
  3. ABATACEPT [Suspect]
     Active Substance: ABATACEPT
     Indication: RHEUMATOID ARTHRITIS
     Dosage: 750 MG, Q2WK
     Route: 042
     Dates: start: 20160811
  4. CALCIUM [Concomitant]
     Active Substance: CALCIUM
     Indication: HEPATIC ENZYME
     Route: 065

REACTIONS (7)
  - Infusion related reaction [Unknown]
  - Eye operation [Recovering/Resolving]
  - Blindness unilateral [Unknown]
  - Paraesthesia [Unknown]
  - Pain [Unknown]
  - Gastroenteritis viral [Unknown]
  - Nausea [Recovered/Resolved]

NARRATIVE: CASE EVENT DATE: 20161129
